FAERS Safety Report 10377311 (Version 1)
Quarter: 2014Q3

REPORT INFORMATION
  Report Type: Report from Study
  Country: US (occurrence: US)
  Receive Date: 20140812
  Receipt Date: 20140812
  Transmission Date: 20150326
  Serious: Yes (Hospitalization)
  Sender: FDA-Public Use
  Company Number: PHHY2013US159488

PATIENT
  Age: 55 Year
  Sex: Female

DRUGS (43)
  1. ADVAIR DISKUS [Concomitant]
     Active Substance: FLUTICASONE PROPIONATE\SALMETEROL XINAFOATE
     Dosage: 250-50 UG/DOSE
     Dates: start: 20120730
  2. EPIPEN [Concomitant]
     Active Substance: EPINEPHRINE
     Dosage: 0.3 MG/0.3 ML
     Route: 030
     Dates: start: 20121116
  3. VIGAMOX [Concomitant]
     Active Substance: MOXIFLOXACIN HYDROCHLORIDE
     Dosage: 0.5 %
     Dates: start: 20121025
  4. SULFAMETHOXAZOLE [Concomitant]
     Active Substance: SULFAMETHOXAZOLE
     Dosage: UNK
     Route: 048
     Dates: start: 20120615
  5. XOLAIR [Suspect]
     Active Substance: OMALIZUMAB
     Indication: ASTHMA
     Dosage: 300 MG, 1 IN 4 WEEKS
     Route: 058
  6. XOLAIR [Suspect]
     Active Substance: OMALIZUMAB
     Dosage: UNK UKN, UNK
     Route: 058
  7. NAPROSYN [Suspect]
     Active Substance: NAPROXEN
     Dosage: 500 MG
     Route: 048
     Dates: start: 20110829
  8. AVANDIA [Concomitant]
     Active Substance: ROSIGLITAZONE MALEATE
     Dosage: UNK UKN, UNK
  9. LIPITOR [Concomitant]
     Active Substance: ATORVASTATIN CALCIUM
     Dosage: UNK
     Route: 048
     Dates: start: 20111129
  10. BENADRYL [Concomitant]
     Active Substance: DIPHENHYDRAMINE HYDROCHLORIDE
     Dosage: UNK
  11. COLACE [Concomitant]
     Active Substance: DOCUSATE SODIUM
     Dosage: UNK
  12. CLARITIN [Concomitant]
     Active Substance: LORATADINE
     Dosage: UNK UKN, UNK
     Route: 048
  13. PROVENTIL HFA//SALBUTAMOL SULFATE [Concomitant]
     Dosage: 108 UG/ACT, 2 PUFFS 4 IN 1 DAY
     Dates: start: 20111101
  14. SINGULAIR [Concomitant]
     Active Substance: MONTELUKAST SODIUM
     Dosage: UNK
     Route: 048
  15. SPIRIVA [Concomitant]
     Active Substance: TIOTROPIUM BROMIDE MONOHYDRATE
     Dosage: 18 UG
  16. XOLAIR [Suspect]
     Active Substance: OMALIZUMAB
     Dosage: UNK UKN, UNK
     Route: 058
  17. CEFTRIAXONE. [Suspect]
     Active Substance: CEFTRIAXONE
     Dosage: UNK UKN, UNK
  18. TRAMADOL [Concomitant]
     Active Substance: TRAMADOL
     Dosage: UNK UKN, UNK
  19. CLOPIDOGREL BISULFATE. [Concomitant]
     Active Substance: CLOPIDOGREL BISULFATE
     Dosage: 75 MG
     Route: 048
     Dates: start: 20120909
  20. LORATADINE. [Concomitant]
     Active Substance: LORATADINE
     Dosage: 10 MG, 1 IN 1 DAY
     Route: 048
     Dates: start: 20121011
  21. NASONEX [Concomitant]
     Active Substance: MOMETASONE FUROATE
     Dosage: 50 UG/ACT, 2 DF EACH NOSTRIL DAILY
     Dates: start: 20111102
  22. PREDNISONE. [Concomitant]
     Active Substance: PREDNISONE
     Dosage: 10 MG, 1 IN 1 DAY
     Route: 048
     Dates: start: 20120420
  23. ASMANEX [Concomitant]
     Active Substance: MOMETASONE FUROATE
     Dosage: UNK
  24. ASPIRIN E.C [Concomitant]
     Active Substance: ASPIRIN
     Dosage: 81 MG, 1 IN 1 DAY
     Route: 048
     Dates: start: 20111018
  25. NYSTOP [Concomitant]
     Active Substance: NYSTATIN
     Dosage: 100000 U/GM
     Dates: start: 20120623
  26. PLAVIX [Concomitant]
     Active Substance: CLOPIDOGREL BISULFATE
     Dosage: UNK
     Route: 048
  27. ASTEPRO [Concomitant]
     Active Substance: AZELASTINE HYDROCHLORIDE
     Dosage: 2 PUFFS IN EACH NOSTRIL DAILY (1 IN 1 DAY)
     Dates: start: 20110929
  28. METFORMIN HYDROCHLORIDE. [Concomitant]
     Active Substance: METFORMIN HYDROCHLORIDE
     Dosage: UNK UKN, UNK
     Route: 048
     Dates: start: 20111129
  29. ALBUTEROL SULFATE. [Concomitant]
     Active Substance: ALBUTEROL SULFATE
     Dosage: UNK UKN, UNK
     Dates: start: 20111129
  30. COMBIVENT [Concomitant]
     Active Substance: ALBUTEROL SULFATE\IPRATROPIUM BROMIDE
     Indication: DYSPNOEA
     Dosage: 18-103 UG/ACT, INHALE 2 PUFFS PRN
     Route: 048
     Dates: start: 20120723
  31. HYDROCODONE/ACETAMINOPHEN [Concomitant]
     Active Substance: ACETAMINOPHEN\HYDROCODONE
     Dosage: 5-500 MG, Q6H
     Route: 048
     Dates: start: 20120623
  32. POTASSIUM CHLORIDE. [Concomitant]
     Active Substance: POTASSIUM CHLORIDE
     Dosage: 20 MEQ
     Route: 048
     Dates: start: 20120821
  33. SOLU-MEDROL [Concomitant]
     Active Substance: METHYLPREDNISOLONE SODIUM SUCCINATE
     Dosage: UNK
  34. NAPROSYN [Suspect]
     Active Substance: NAPROXEN
     Dosage: UNK UKN, UNK
     Route: 048
  35. BACTRIM [Concomitant]
     Active Substance: SULFAMETHOXAZOLE\TRIMETHOPRIM
     Dosage: UNK UKN, UNK
     Route: 048
  36. PROTONIX [Concomitant]
     Active Substance: PANTOPRAZOLE SODIUM
     Dosage: 1 DF IN 1 DAY
  37. PLENDIL [Concomitant]
     Active Substance: FELODIPINE
     Dosage: UNK UKN, UNK
  38. DIOVAN [Concomitant]
     Active Substance: VALSARTAN
     Dosage: UNK
     Route: 048
     Dates: start: 20111129
  39. METOCLOPRAMIDE HCL [Concomitant]
     Active Substance: METOCLOPRAMIDE HYDROCHLORIDE
     Dosage: 5 MG, BID (ONE 30 MIN BEFORE MEALS AND AT BEDTIME)
     Route: 048
  40. PANTOPRAZOLE SODIUM [Concomitant]
     Active Substance: PANTOPRAZOLE SODIUM
     Dosage: 40 MG
     Route: 048
     Dates: start: 20110714
  41. POLYETHYLENE GLYCOL 3350. [Concomitant]
     Active Substance: POLYETHYLENE GLYCOL 3350
     Dosage: 1 DF IN 1 DAY
     Route: 048
     Dates: start: 20120623
  42. SUDOGEST [Concomitant]
     Active Substance: PSEUDOEPHEDRINE HYDROCHLORIDE
     Dosage: 30 MG, Q8H
     Route: 048
     Dates: start: 20111031
  43. ATROVENT [Concomitant]
     Active Substance: IPRATROPIUM BROMIDE
     Dosage: UNK

REACTIONS (19)
  - Tinnitus [Unknown]
  - Dyspnoea exertional [Unknown]
  - Asthma [Recovered/Resolved]
  - Dyspnoea [Recovering/Resolving]
  - Oedema peripheral [Unknown]
  - Lacrimation increased [Unknown]
  - Oedema [Unknown]
  - Oropharyngeal pain [Unknown]
  - Pneumonia [Recovering/Resolving]
  - Chest discomfort [Recovered/Resolved]
  - Hypoxia [Unknown]
  - Nasal turbinate hypertrophy [Unknown]
  - Chronic sinusitis [Unknown]
  - Interstitial lung disease [Unknown]
  - Blood creatinine increased [Recovered/Resolved]
  - Nasal obstruction [Unknown]
  - Rash [Recovering/Resolving]
  - Dyspepsia [Unknown]
  - Constipation [Unknown]

NARRATIVE: CASE EVENT DATE: 20070221
